FAERS Safety Report 4722025-9 (Version None)
Quarter: 2005Q3

REPORT INFORMATION
  Report Type: 
  Country: None (occurrence: None)
  Receive Date: 20050722
  Receipt Date: 20050711
  Transmission Date: 20060218
  Serious: Yes (Hospitalization)
  Sender: FDA-Public Use
  Company Number: US-KINGPHARMUSA00001-K200500935

PATIENT
  Age: 68 Year
  Sex: Male
  Weight: 101 kg

DRUGS (6)
  1. LEVOXYL [Suspect]
     Indication: HYPOTHYROIDISM
     Dosage: 50 MCG, QD
     Route: 048
     Dates: start: 20040601, end: 20050601
  2. LEVOXYL [Suspect]
     Dosage: 50 MCG, QOD
     Route: 048
     Dates: start: 20050601, end: 20050701
  3. LEVOXYL [Suspect]
     Dosage: 100 MCG, QOD
     Route: 048
     Dates: start: 20050601, end: 20050701
  4. LEVOXYL [Suspect]
     Dosage: 50 MCG, QD
     Route: 048
     Dates: start: 20050708
  5. TOFRANIL [Suspect]
     Indication: DEPRESSION
  6. THORAZINE [Concomitant]
     Dosage: UNK, UNK

REACTIONS (7)
  - DIZZINESS [None]
  - FALL [None]
  - LOSS OF CONSCIOUSNESS [None]
  - NERVOUSNESS [None]
  - SYNCOPE [None]
  - WOUND [None]
  - WOUND HAEMORRHAGE [None]
